FAERS Safety Report 5108840-0 (Version None)
Quarter: 2006Q3

REPORT INFORMATION
  Report Type: 
  Country: None (occurrence: None)
  Receive Date: 20060915
  Receipt Date: 20060915
  Transmission Date: 20061208
  Serious: Yes (Life-Threatening, Disabling)
  Sender: FDA-Public Use
  Company Number: None

PATIENT
  Age: 77 Year
  Sex: Female
  Weight: 78 kg

DRUGS (1)
  1. TIGECYCLINE [Suspect]
     Indication: OSTEOMYELITIS
     Dosage: 50MG   Q12H    IV
     Route: 042
     Dates: start: 20060815, end: 20060913

REACTIONS (2)
  - BLOOD GLUCOSE DECREASED [None]
  - GLOMERULAR FILTRATION RATE DECREASED [None]
